FAERS Safety Report 21897861 (Version 1)
Quarter: 2023Q1

REPORT INFORMATION
  Report Type: Spontaneous
  Country: FR (occurrence: None)
  Receive Date: 20230123
  Receipt Date: 20230123
  Transmission Date: 20230418
  Serious: Yes (Hospitalization)
  Sender: FDA-Public Use
  Company Number: FR-ROCHE-3269295

PATIENT
  Age: 17 Year
  Sex: Male

DRUGS (4)
  1. RIVOTRIL [Suspect]
     Active Substance: CLONAZEPAM
     Indication: Product used for unknown indication
     Dosage: NON-DAILY USE FOR FINANCIAL REASONS BUT VERY REGULAR AND EXCESSIVE. OBTAINED ON THE BLACK MARKET
     Route: 048
  2. CANNABIS SATIVA SUBSP. INDICA TOP [Suspect]
     Active Substance: CANNABIS SATIVA SUBSP. INDICA TOP
     Indication: Product used for unknown indication
     Dosage: IN 1 DAY : DAILY USE, 4 JOINTS PER DAY.
     Route: 045
  3. LYRICA [Suspect]
     Active Substance: PREGABALIN
     Indication: Product used for unknown indication
     Dosage: NON-DAILY CONSUMPTION FOR FINANCIAL REASONS BUT REGULAR.
     Route: 048
  4. MIRTAZAPINE [Concomitant]
     Active Substance: MIRTAZAPINE

REACTIONS (1)
  - Drug use disorder [Not Recovered/Not Resolved]
